FAERS Safety Report 4991173-0 (Version None)
Quarter: 2006Q2

REPORT INFORMATION
  Report Type: 
  Country: None (occurrence: None)
  Receive Date: 20060427
  Receipt Date: 20060417
  Transmission Date: 20061013
  Serious: Yes (Hospitalization)
  Sender: FDA-Public Use
  Company Number: 2006052833

PATIENT
  Age: 50 Year
  Sex: Female

DRUGS (4)
  1. LIPITOR [Suspect]
     Indication: HYPERLIPIDAEMIA
     Dosage: 10 MG (1 MG, 1 IN 1 D), ORAL
     Route: 048
     Dates: start: 20060410, end: 20060413
  2. ASPIRIN [Suspect]
     Indication: ILL-DEFINED DISORDER
     Dosage: ORAL
     Route: 048
  3. ANTIBIOTICS (ANTIBIOTICS) [Concomitant]
  4. ANTIEPILEPTICS (ANTIEPILEPTICS) [Concomitant]

REACTIONS (3)
  - BLOOD FIBRINOGEN ABNORMAL [None]
  - FIBRIN D DIMER INCREASED [None]
  - PLATELET COUNT DECREASED [None]
